FAERS Safety Report 10663062 (Version 4)
Quarter: 2015Q2

REPORT INFORMATION
  Report Type: Report from Study
  Country: US (occurrence: US)
  Receive Date: 20141218
  Receipt Date: 20150618
  Transmission Date: 20150821
  Serious: Yes (Hospitalization, Other)
  Sender: FDA-Public Use
  Company Number: US-ABBVIE-14P-163-1241963-00

PATIENT
  Sex: Female

DRUGS (1)
  1. HUMIRA [Suspect]
     Active Substance: ADALIMUMAB
     Indication: MATERNAL EXPOSURE TIMING UNSPECIFIED
     Route: 064

REACTIONS (5)
  - Premature baby [Unknown]
  - Foetal exposure during pregnancy [Unknown]
  - Body temperature decreased [Recovered/Resolved]
  - Bradycardia [Recovered/Resolved]
  - Feeding disorder neonatal [Recovered/Resolved]

NARRATIVE: CASE EVENT DATE: 20141214
